FAERS Safety Report 10777704 (Version 1)
Quarter: 2015Q1

REPORT INFORMATION
  Report Type: Spontaneous
  Country: US (occurrence: US)
  Receive Date: 20150209
  Receipt Date: 20150209
  Transmission Date: 20150721
  Serious: No
  Sender: FDA-Public Use
  Company Number: US-GLAXOSMITHKLINE-A0766622A

PATIENT
  Sex: Female

DRUGS (3)
  1. ORACEA [Concomitant]
     Active Substance: DOXYCYCLINE
  2. LAMICTAL [Suspect]
     Active Substance: LAMOTRIGINE
     Indication: SEIZURE
     Dosage: 150 MG, BID
     Route: 048
     Dates: start: 2005
  3. NO CONCURRENT MEDICATION [Concomitant]
     Active Substance: UNSPECIFIED INGREDIENT

REACTIONS (5)
  - Dizziness [Unknown]
  - Fatigue [Unknown]
  - Rosacea [Not Recovered/Not Resolved]
  - Vulvovaginal dryness [Unknown]
  - Weight loss poor [Not Recovered/Not Resolved]
